FAERS Safety Report 7361803-7 (Version None)
Quarter: 2011Q1

REPORT INFORMATION
  Report Type: 
  Country: None (occurrence: None)
  Receive Date: 20110315
  Receipt Date: 20110315
  Transmission Date: 20110831
  Serious: Yes (Life-Threatening, Hospitalization, Disabling)
  Sender: FDA-Public Use
  Company Number: None

PATIENT
  Sex: Male

DRUGS (1)
  1. IMODIUM A-D [Suspect]
     Indication: DIARRHOEA
     Dates: start: 20110303, end: 20110303

REACTIONS (6)
  - PYREXIA [None]
  - ASTHENIA [None]
  - PRODUCT LABEL ISSUE [None]
  - GASTRIC DILATATION [None]
  - INTESTINAL FUNCTIONAL DISORDER [None]
  - COLON INJURY [None]
